FAERS Safety Report 9590397 (Version 1)
Quarter: 2013Q4

REPORT INFORMATION
  Report Type: Spontaneous
  Country: IT (occurrence: IT)
  Receive Date: 20131003
  Receipt Date: 20131003
  Transmission Date: 20140711
  Serious: Yes (Hospitalization, Other)
  Sender: FDA-Public Use
  Company Number: IT-JNJFOC-20130907767

PATIENT
  Age: 30 Year
  Sex: Female

DRUGS (2)
  1. IBUPROFEN [Suspect]
     Indication: SMOKING CESSATION THERAPY
     Route: 048
     Dates: start: 20130608, end: 20130608
  2. BUPROPION [Suspect]
     Indication: SMOKING CESSATION THERAPY
     Route: 048
     Dates: start: 20130608, end: 20130608

REACTIONS (6)
  - Drug abuse [Unknown]
  - Electrocardiogram QT prolonged [Unknown]
  - Panic attack [Unknown]
  - Tremor [Unknown]
  - Agitation [Unknown]
  - Off label use [Unknown]
